FAERS Safety Report 19748537 (Version 1)
Quarter: 2021Q3

REPORT INFORMATION
  Report Type: Spontaneous
  Country: DE (occurrence: DE)
  Receive Date: 20210825
  Receipt Date: 20210825
  Transmission Date: 20211014
  Serious: Yes (Hospitalization)
  Sender: FDA-Public Use
  Company Number: DE-ACCORD-236271

PATIENT
  Age: 60 Year
  Sex: Female

DRUGS (2)
  1. LOSARTAN. [Concomitant]
     Active Substance: LOSARTAN
     Dosage: 12.5 50 MG, 0?0?1?0,  N COMP. FROM Z 50 MG / 12.5 MG FILM?COATED TABLETS
     Route: 048
  2. LETROZOLE. [Suspect]
     Active Substance: LETROZOLE
     Indication: PRODUCT USED FOR UNKNOWN INDICATION
     Route: 048

REACTIONS (4)
  - Dizziness [Unknown]
  - Palpitations [Unknown]
  - Restlessness [Unknown]
  - Performance status decreased [Unknown]
